FAERS Safety Report 5645167-2 (Version None)
Quarter: 2008Q1

REPORT INFORMATION
  Report Type: 
  Country: None (occurrence: None)
  Receive Date: 20080229
  Receipt Date: 20080220
  Transmission Date: 20080703
  Serious: Yes (Death, Hospitalization)
  Sender: FDA-Public Use
  Company Number: DE-BAYER-200813442GPV

PATIENT
  Age: 68 Year
  Sex: Female

DRUGS (1)
  1. AVELOX [Suspect]
     Indication: BRONCHITIS
     Route: 065
     Dates: start: 20071227

REACTIONS (4)
  - DYSPNOEA [None]
  - LIVER FUNCTION TEST ABNORMAL [None]
  - RASH [None]
  - SHOCK [None]
